FAERS Safety Report 7649229-X (Version None)
Quarter: 2011Q3

REPORT INFORMATION
  Report Type: 
  Country: None (occurrence: None)
  Receive Date: 20110726
  Receipt Date: 20110711
  Transmission Date: 20111222
  Serious: Yes (Other)
  Sender: FDA-Public Use
  Company Number: 2011001988

PATIENT
  Age: 57 Year
  Sex: Male

DRUGS (2)
  1. TARCEVA [Suspect]
     Indication: LUNG NEOPLASM MALIGNANT
     Dosage: 150 MG, UID/QD, ORAL ; 100 MG, UID/QD, ORAL
     Route: 048
     Dates: start: 20110401, end: 20110401
  2. TARCEVA [Suspect]
     Indication: LUNG NEOPLASM MALIGNANT
     Dosage: 150 MG, UID/QD, ORAL ; 100 MG, UID/QD, ORAL
     Route: 048
     Dates: end: 20110701

REACTIONS (6)
  - DISEASE PROGRESSION [None]
  - DERMATITIS BULLOUS [None]
  - PURULENCE [None]
  - EPISTAXIS [None]
  - NASAL NECROSIS [None]
  - LUNG NEOPLASM MALIGNANT [None]
